FAERS Safety Report 11098882 (Version 1)
Quarter: 2015Q2

REPORT INFORMATION
  Report Type: Spontaneous
  Country: BR (occurrence: BR)
  Receive Date: 20150508
  Receipt Date: 20150508
  Transmission Date: 20150821
  Serious: Yes (Hospitalization)
  Sender: FDA-Public Use
  Company Number: BR-PFIZER INC-2015150935

PATIENT
  Age: 82 Year
  Sex: Male
  Weight: 90 kg

DRUGS (5)
  1. XALATAN [Suspect]
     Active Substance: LATANOPROST
     Indication: GLAUCOMA
     Dosage: UNK
     Dates: start: 20121005
  2. MONONITRAT ISOSORBIDE [Concomitant]
     Indication: CARDIAC DISORDER
  3. GALVUS [Concomitant]
     Active Substance: VILDAGLIPTIN
     Dosage: UNK, 1X/DAY
  4. CROPROPAMIDA [Concomitant]
  5. PANTOPRAZOLE [Concomitant]
     Active Substance: PANTOPRAZOLE SODIUM
     Indication: ABDOMINAL DISCOMFORT
     Dosage: UNK, 1X/DAY IN FASTING

REACTIONS (2)
  - Peripheral vascular disorder [Unknown]
  - Thrombosis [Unknown]
